FAERS Safety Report 17536797 (Version 3)
Quarter: 2020Q3

REPORT INFORMATION
  Report Type: Spontaneous
  Country: US (occurrence: US)
  Receive Date: 20200313
  Receipt Date: 20200723
  Transmission Date: 20201102
  Serious: No
  Sender: FDA-Public Use
  Company Number: US-GLAXOSMITHKLINE-US2020AMR042382

PATIENT
  Age: 77 Year
  Sex: Male

DRUGS (1)
  1. FLUTICASONE PROPIONATE+SALMETEROL XINAFOATE [Suspect]
     Active Substance: FLUTICASONE PROPIONATE\SALMETEROL XINAFOATE
     Indication: PRODUCT USED FOR UNKNOWN INDICATION
     Dosage: UNK
     Route: 065

REACTIONS (2)
  - Product dose omission issue [Unknown]
  - Product complaint [Unknown]

NARRATIVE: CASE EVENT DATE: 20200304
